FAERS Safety Report 8244746-6 (Version None)
Quarter: 2012Q1

REPORT INFORMATION
  Report Type: 
  Country: None (occurrence: None)
  Receive Date: 20120329
  Receipt Date: 20110418
  Transmission Date: 20120608
  Serious: No
  Sender: FDA-Public Use
  Company Number: US-MYLANLABS-2011S1005420

PATIENT
  Sex: Male

DRUGS (13)
  1. PERCOCET [Concomitant]
  2. PROCHLORPERAZINE [Concomitant]
  3. FENTANYL-100 [Suspect]
     Indication: PAIN
     Dosage: Q72H
     Route: 062
     Dates: start: 20061101
  4. FENTANYL-100 [Suspect]
     Dosage: Q72H
     Route: 062
     Dates: start: 20061101
  5. ANTINEOPLASTIC AGENTS [Suspect]
     Indication: MESOTHELIOMA
  6. GUAIFENESIN [Concomitant]
  7. NEXIUM [Concomitant]
  8. ANTINEOPLASTIC AGENTS [Suspect]
     Indication: LUNG NEOPLASM MALIGNANT
  9. FOLIC ACID [Concomitant]
  10. FENTANYL-100 [Suspect]
     Dosage: Q72H
     Route: 062
     Dates: start: 20061101
  11. FENTANYL-100 [Suspect]
     Dosage: Q72H
     Route: 062
     Dates: start: 20061101
  12. ALLEGRA [Concomitant]
  13. PAROXETINE [Concomitant]

REACTIONS (1)
  - TOOTH EROSION [None]
